FAERS Safety Report 23046815 (Version 2)
Quarter: 2023Q4

REPORT INFORMATION
  Report Type: Report from Study
  Country: US (occurrence: US)
  Receive Date: 20231009
  Receipt Date: 20231024
  Transmission Date: 20240109
  Serious: Yes (Hospitalization, Other)
  Sender: FDA-Public Use
  Company Number: US-BAYER-2023A068352

PATIENT
  Age: 79 Year
  Sex: Male

DRUGS (2)
  1. NUBEQA [Suspect]
     Active Substance: DAROLUTAMIDE
     Dosage: UNK
     Dates: start: 20231005, end: 20231007
  2. NUBEQA [Suspect]
     Active Substance: DAROLUTAMIDE
     Dosage: UNK
     Dates: start: 20231005, end: 20231007

REACTIONS (4)
  - Orthostatic hypotension [None]
  - Syncope [None]
  - Cardiac disorder [None]
  - Dizziness [Not Recovered/Not Resolved]
